FAERS Safety Report 8376396-5 (Version None)
Quarter: 2012Q2

REPORT INFORMATION
  Report Type: 
  Country: None (occurrence: None)
  Receive Date: 20120522
  Receipt Date: 20120514
  Transmission Date: 20120825
  Serious: Yes (Hospitalization, Other)
  Sender: FDA-Public Use
  Company Number: US-ASTRAZENECA-2011SE32265

PATIENT
  Age: 62 Year
  Sex: Female

DRUGS (45)
  1. NEXIUM [Suspect]
     Indication: GASTROOESOPHAGEAL REFLUX DISEASE
     Dosage: TOOK NEXIUM FOR SEVERAL YEARS
     Route: 048
  2. BENICAR HCT [Concomitant]
     Dosage: 20/12.5 QD
     Dates: start: 20060127
  3. ASATHIOPRINE [Concomitant]
     Indication: VASCULITIS
  4. PREVENTATIVE MAZALT [Concomitant]
     Indication: MIGRAINE
  5. ENABLEX [Concomitant]
     Dates: start: 20060127
  6. LEXAPRO [Concomitant]
     Indication: DEPRESSION
  7. LIPITOR [Concomitant]
     Indication: BLOOD CHOLESTEROL
     Dates: start: 20031202
  8. LIPITOR [Concomitant]
     Dates: start: 20050101
  9. LOTREL [Concomitant]
     Indication: BLOOD PRESSURE INCREASED
     Dosage: 10/20 MG
     Dates: start: 20050101
  10. WELLBUTRIN XL [Concomitant]
     Indication: ANXIETY
     Dates: start: 20050101
  11. MAXALT [Concomitant]
     Dosage: 10 MG PRN
     Dates: start: 20060127
  12. FIORINAL [Concomitant]
     Indication: HEADACHE
     Dates: start: 20050101
  13. BENTYL [Concomitant]
     Indication: IRRITABLE BOWEL SYNDROME
     Dates: start: 20050101
  14. ACTONEL [Concomitant]
     Dosage: 35 MG WEEKLY
     Dates: start: 20060127
  15. BEXTRA [Concomitant]
     Dates: start: 20031202
  16. RECLAST [Concomitant]
     Indication: OSTEOPOROSIS
  17. DITROPAN XL [Concomitant]
     Indication: POLLAKIURIA
     Dates: start: 20050101
  18. DITROPAN XL [Concomitant]
     Dates: start: 20031202
  19. MAXALT [Concomitant]
     Indication: MIGRAINE
     Dates: start: 20050101
  20. ALTACE [Concomitant]
     Dates: start: 20031202
  21. BENICAR HCT [Concomitant]
     Indication: HYPERTENSION
  22. FLORINAL [Concomitant]
     Indication: HYPERTENSION
     Dates: start: 20060127
  23. LEVOTHYROXINE SODIUM [Concomitant]
     Indication: HYPOTHYROIDISM
  24. ENABLEX [Concomitant]
     Indication: URINARY INCONTINENCE
  25. BENTYL [Concomitant]
     Dosage: 20 MG PRN
     Dates: start: 20060127
  26. CRESTOR [Concomitant]
     Dosage: 10
     Dates: start: 20060127
  27. DAPSONE [Concomitant]
     Indication: VASCULITIS
  28. PROPRANOLOL [Concomitant]
     Dates: start: 20031202
  29. CARBEMAZEPIN [Concomitant]
     Indication: TRIGEMINAL NEURALGIA
  30. ACTONEL [Concomitant]
     Dates: start: 20050101
  31. NITROGLYCERIN [Concomitant]
     Route: 060
     Dates: start: 20031202
  32. NEXIUM [Suspect]
     Route: 048
     Dates: start: 20030701
  33. NEXIUM [Suspect]
     Route: 048
     Dates: start: 20031202
  34. ALLEGRA-D 12 HOUR [Concomitant]
     Dates: start: 20031202
  35. NEXIUM [Suspect]
     Route: 048
     Dates: start: 20010101, end: 20110501
  36. PEPCID [Concomitant]
     Indication: GASTROOESOPHAGEAL REFLUX DISEASE
     Dates: start: 20110501
  37. LOVASTATIN [Concomitant]
     Indication: BLOOD CHOLESTEROL INCREASED
  38. PROPRANOLOL [Concomitant]
     Indication: MIGRAINE
     Dates: start: 20050101
  39. ALLEGRA-D 12 HOUR [Concomitant]
     Indication: RHINITIS ALLERGIC
     Dates: start: 20050101
  40. ACTONEL [Concomitant]
     Dosage: 35 MG PRN T PO Q SATURDAY AM
     Route: 048
  41. WELLBUTRIN SR [Concomitant]
     Dates: start: 20050101
  42. VITAMIN D [Concomitant]
     Indication: OSTEOPOROSIS
  43. CALCIUM [Concomitant]
     Indication: OSTEOPOROSIS
  44. PERIOSTAT [Concomitant]
     Dates: start: 20050101
  45. ASPIRIN,BUTALBITAL,CAFFEINE [Concomitant]
     Dates: start: 20031202

REACTIONS (16)
  - UPPER LIMB FRACTURE [None]
  - SPINAL OSTEOARTHRITIS [None]
  - FALL [None]
  - DEPRESSION [None]
  - SPINAL COLUMN STENOSIS [None]
  - WRIST FRACTURE [None]
  - ULNA FRACTURE [None]
  - OESOPHAGEAL SPASM [None]
  - RADIUS FRACTURE [None]
  - FEMUR FRACTURE [None]
  - HYPOTHYROIDISM [None]
  - LOWER LIMB FRACTURE [None]
  - TIBIA FRACTURE [None]
  - OSTEOPOROSIS [None]
  - GASTROOESOPHAGEAL REFLUX DISEASE [None]
  - FOREARM FRACTURE [None]
